FAERS Safety Report 19839427 (Version 1)
Quarter: 2021Q3

REPORT INFORMATION
  Report Type: Spontaneous
  Country: US (occurrence: US)
  Receive Date: 20210915
  Receipt Date: 20210915
  Transmission Date: 20211014
  Serious: No
  Sender: FDA-Public Use
  Company Number: None

PATIENT
  Age: 51 Year
  Sex: Female

DRUGS (1)
  1. AIMOVIG [Suspect]
     Active Substance: ERENUMAB-AOOE
     Route: 058
     Dates: start: 20200812, end: 20210805

REACTIONS (2)
  - Urticaria [None]
  - Injection site reaction [None]

NARRATIVE: CASE EVENT DATE: 20210706
